FAERS Safety Report 20488159 (Version 1)
Quarter: 2022Q1

REPORT INFORMATION
  Report Type: Spontaneous
  Country: BR (occurrence: BR)
  Receive Date: 20220218
  Receipt Date: 20220218
  Transmission Date: 20220423
  Serious: Yes (Life-Threatening, Other)
  Sender: FDA-Public Use
  Company Number: BR-NOVARTISPH-NVSC2022BR017217

PATIENT
  Age: 85 Year
  Sex: Male
  Weight: 90 kg

DRUGS (4)
  1. QUETIAPINE FUMARATE [Suspect]
     Active Substance: QUETIAPINE FUMARATE
     Indication: Sleep disorder
     Dosage: 1 DOSAGE FORM, QD (STOPPED ABOUT 15 DAYS AGO)
     Route: 048
     Dates: start: 202101
  2. QUETIAPINE FUMARATE [Suspect]
     Active Substance: QUETIAPINE FUMARATE
     Dosage: 0.5 DOSAGE FORM, QD (HALF A TABLET OF 25 MG) (STOPPED ABOUT 15 DAYS AGO)
     Route: 048
     Dates: start: 202102
  3. GLYXAMBI [Concomitant]
     Active Substance: EMPAGLIFLOZIN\LINAGLIPTIN
     Indication: Arrhythmia
     Dosage: 0.5 DOSAGE FORM, QD, STARTED 2 MONTH AGO
     Route: 048
  4. INSULIN NOS [Concomitant]
     Active Substance: INSULIN NOS
     Indication: Diabetes mellitus
     Dosage: WHEN EATS A HIGH CARBOHYDRATE DIE T(STARTED 3 TO 4 YEARS AGO) (WHEN EATS A CARBOHYDRATE DIET)
     Route: 058

REACTIONS (16)
  - Near death experience [Recovered/Resolved]
  - Syncope [Recovered/Resolved]
  - Malaise [Unknown]
  - Feeling abnormal [Recovered/Resolved]
  - Hangover [Recovered/Resolved]
  - Dizziness [Recovered/Resolved]
  - Confusional state [Recovered/Resolved]
  - Vision blurred [Recovered/Resolved]
  - Illness [Recovered/Resolved]
  - Confusional state [Recovered/Resolved]
  - Vision blurred [Recovered/Resolved]
  - Hangover [Recovered/Resolved]
  - Dizziness [Recovered/Resolved]
  - Incorrect dose administered [Unknown]
  - Wrong technique in product usage process [Recovered/Resolved]
  - Product use in unapproved indication [Unknown]

NARRATIVE: CASE EVENT DATE: 20220101
